FAERS Safety Report 24223021 (Version 1)
Quarter: 2024Q3

REPORT INFORMATION
  Report Type: Spontaneous
  Country: US (occurrence: US)
  Receive Date: 20240819
  Receipt Date: 20240819
  Transmission Date: 20241016
  Serious: No
  Sender: BIOCON
  Company Number: US-MIMS-BCONMC-5705

PATIENT

DRUGS (1)
  1. INSULIN GLARGINE [Suspect]
     Active Substance: INSULIN GLARGINE
     Indication: Type 2 diabetes mellitus
     Dosage: 62 UNITS/ML, QD
     Route: 065

REACTIONS (2)
  - Device mechanical issue [Unknown]
  - Drug delivery system issue [Unknown]

NARRATIVE: CASE EVENT DATE: 20240620
